FAERS Safety Report 5234360-9 (Version None)
Quarter: 2007Q1

REPORT INFORMATION
  Report Type: 
  Country: None (occurrence: None)
  Receive Date: 20070209
  Receipt Date: 20070206
  Transmission Date: 20070707
  Serious: Yes (Life-Threatening, Hospitalization)
  Sender: FDA-Public Use
  Company Number: ESWYE572407FEB07

PATIENT
  Age: 25 Year
  Sex: Male

DRUGS (2)
  1. TAZOCEL [Suspect]
     Indication: HYPERVENTILATION
     Route: 042
     Dates: start: 20060808, end: 20060815
  2. COLISTIN [Concomitant]
     Indication: HYPERVENTILATION
     Route: 025
     Dates: start: 20060808, end: 20060814

REACTIONS (5)
  - DISCOMFORT [None]
  - HAEMOLYTIC ANAEMIA [None]
  - HEPATIC FUNCTION ABNORMAL [None]
  - JAUNDICE [None]
  - RENAL IMPAIRMENT [None]
